FAERS Safety Report 13233257 (Version 2)
Quarter: 2017Q1

REPORT INFORMATION
  Report Type: Spontaneous
  Country: US (occurrence: US)
  Receive Date: 20170215
  Receipt Date: 20170320
  Transmission Date: 20170428
  Serious: No
  Sender: FDA-Public Use
  Company Number: US-CELGENEUS-USA-2017022086

PATIENT
  Age: 59 Year
  Sex: Male
  Weight: 92.16 kg

DRUGS (1)
  1. OTEZLA [Suspect]
     Active Substance: APREMILAST
     Indication: PSORIASIS
     Dosage: 60 MILLIGRAM
     Route: 048
     Dates: start: 20160321, end: 20170112

REACTIONS (3)
  - Rebound psoriasis [Unknown]
  - Blister [Unknown]
  - Psoriasis [Unknown]

NARRATIVE: CASE EVENT DATE: 20170112
